FAERS Safety Report 8346669-0 (Version None)
Quarter: 2012Q2

REPORT INFORMATION
  Report Type: 
  Country: None (occurrence: None)
  Receive Date: 20120509
  Receipt Date: 20120507
  Transmission Date: 20120825
  Serious: Yes (Other)
  Sender: FDA-Public Use
  Company Number: PHHY2011PH11243

PATIENT
  Sex: Female

DRUGS (3)
  1. SANGOBION [Concomitant]
     Dosage: UNK
     Dates: start: 20101201
  2. GLEEVEC [Suspect]
     Indication: CHRONIC MYELOID LEUKAEMIA
     Dosage: 400 MG, PER DAY
     Dates: end: 20101201
  3. GLEEVEC [Suspect]
     Dosage: 400 MG, PER DAY
     Dates: start: 20110819

REACTIONS (3)
  - NORMAL NEWBORN [None]
  - RUPTURED ECTOPIC PREGNANCY [None]
  - MATERNAL EXPOSURE DURING PREGNANCY [None]
